FAERS Safety Report 12433468 (Version 2)
Quarter: 2016Q2

REPORT INFORMATION
  Report Type: Report from Study
  Country: BR (occurrence: BR)
  Receive Date: 20160603
  Receipt Date: 20160609
  Transmission Date: 20160815
  Serious: Yes (Death, Hospitalization, Other)
  Sender: FDA-Public Use
  Company Number: BR-ALEXION-A201604019

PATIENT
  Age: 50 Year
  Sex: Male

DRUGS (1)
  1. SOLIRIS [Suspect]
     Active Substance: ECULIZUMAB
     Indication: HAEMOLYTIC URAEMIC SYNDROME
     Dosage: 900 MG, UNK
     Route: 042
     Dates: start: 20160519

REACTIONS (9)
  - Haemolytic uraemic syndrome [Fatal]
  - Acute kidney injury [Fatal]
  - Hospitalisation [Unknown]
  - Mouth haemorrhage [Fatal]
  - Haemolytic anaemia [Fatal]
  - Asthenia [Recovering/Resolving]
  - Platelet count decreased [Fatal]
  - Adverse event [Recovered/Resolved]
  - Aortic stenosis [Fatal]

NARRATIVE: CASE EVENT DATE: 20160525
